FAERS Safety Report 14401023 (Version 1)
Quarter: 2018Q1

REPORT INFORMATION
  Report Type: Report from Study
  Country: US (occurrence: US)
  Receive Date: 20180117
  Receipt Date: 20180117
  Transmission Date: 20180509
  Serious: Yes (Death, Hospitalization, Other)
  Sender: FDA-Public Use
  Company Number: US-TAKEDA-2018TUS001179

PATIENT
  Sex: Female
  Weight: 95.24 kg

DRUGS (1)
  1. COLCHICINE. [Suspect]
     Active Substance: COLCHICINE
     Indication: GOUT
     Dosage: UNK
     Route: 048

REACTIONS (4)
  - Pulmonary embolism [Fatal]
  - Respiratory arrest [Fatal]
  - Seizure [Unknown]
  - Urinary tract infection [Unknown]
